FAERS Safety Report 11741723 (Version 1)
Quarter: 2015Q4

REPORT INFORMATION
  Report Type: Spontaneous
  Country: US (occurrence: US)
  Receive Date: 20151116
  Receipt Date: 20151116
  Transmission Date: 20160304
  Serious: Yes (Other)
  Sender: FDA-Public Use
  Company Number: US-UCBSA-2015035895

PATIENT
  Age: 18 Year
  Sex: Male
  Weight: 83.9 kg

DRUGS (2)
  1. CIMZIA [Suspect]
     Active Substance: CERTOLIZUMAB PEGOL
     Indication: UVEITIS
     Dosage: 400 MG, EV 4 WEEKS
     Route: 058
     Dates: start: 201410
  2. CIMZIA [Suspect]
     Active Substance: CERTOLIZUMAB PEGOL
     Indication: OFF LABEL USE

REACTIONS (3)
  - Off label use [Unknown]
  - Acne [Recovered/Resolved]
  - Cyst [Recovered/Resolved]

NARRATIVE: CASE EVENT DATE: 201410
